FAERS Safety Report 7213944-2 (Version None)
Quarter: 2011Q1

REPORT INFORMATION
  Report Type: 
  Country: None (occurrence: None)
  Receive Date: 20110106
  Receipt Date: 20110104
  Transmission Date: 20110831
  Serious: Yes (Hospitalization, Other)
  Sender: FDA-Public Use
  Company Number: BR-ABBOTT-10P-020-0657403-00

PATIENT
  Sex: Female
  Weight: 73 kg

DRUGS (14)
  1. METFORMIN HCL [Concomitant]
     Indication: DIABETES MELLITUS
     Route: 048
     Dates: start: 20000101
  2. METHOTREXATE [Concomitant]
     Indication: MUSCULOSKELETAL PAIN
     Route: 048
     Dates: start: 20070101
  3. FOLIC ACID [Concomitant]
  4. AMLOVASC [Concomitant]
     Indication: HYPERTENSION
     Route: 048
     Dates: start: 20100528
  5. FOLIC ACID [Concomitant]
     Indication: ADVERSE DRUG REACTION
  6. FOLIC ACID [Concomitant]
     Indication: RENAL DISORDER
  7. HUMIRA [Suspect]
     Route: 058
     Dates: start: 20090101, end: 20100501
  8. REGULAR INSULIN [Concomitant]
     Indication: DIABETES MELLITUS
     Route: 058
     Dates: start: 20050101
  9. HUMIRA [Suspect]
     Indication: PSORIATIC ARTHROPATHY
     Route: 058
     Dates: start: 20100101
  10. ENALAPRIL [Concomitant]
     Indication: HYPERTENSION
     Route: 048
     Dates: start: 20060101
  11. PREDNISONE [Concomitant]
     Indication: MUSCULOSKELETAL PAIN
     Route: 048
     Dates: start: 20070101
  12. NPH INSULIN [Concomitant]
     Indication: DIABETES MELLITUS
     Route: 058
     Dates: start: 20050101
  13. FOLIC ACID [Concomitant]
     Indication: PROPHYLAXIS
     Route: 048
     Dates: start: 20070101
  14. LODIPIL [Concomitant]
     Indication: DIABETES MELLITUS
     Dates: start: 20060101

REACTIONS (7)
  - PAIN IN EXTREMITY [None]
  - PSORIATIC ARTHROPATHY [None]
  - CARDIAC DISORDER [None]
  - FATIGUE [None]
  - ARTERIAL OCCLUSIVE DISEASE [None]
  - ASTHENIA [None]
  - DEVICE DISLOCATION [None]
